FAERS Safety Report 12789933 (Version 2)
Quarter: 2016Q4

REPORT INFORMATION
  Report Type: Spontaneous
  Country: FR (occurrence: FR)
  Receive Date: 20160928
  Receipt Date: 20161020
  Transmission Date: 20170207
  Serious: Yes (Other)
  Sender: FDA-Public Use
  Company Number: FR-009507513-1609FRA012752

PATIENT
  Age: 66 Year
  Sex: Male

DRUGS (7)
  1. JANUMET [Suspect]
     Active Substance: METFORMIN HYDROCHLORIDE\SITAGLIPTIN PHOSPHATE
     Indication: DIABETES MELLITUS
     Dosage: DOSE: 50/1000 (UNITS NOT PROVIDED), TWICE A DAY
     Route: 048
     Dates: start: 2013, end: 20160919
  2. METFORMIN [Concomitant]
     Active Substance: METFORMIN HYDROCHLORIDE
  3. EXFORGE [Concomitant]
     Active Substance: AMLODIPINE BESYLATE\VALSARTAN
  4. KARDEGIC [Concomitant]
     Active Substance: ASPIRIN LYSINE
  5. LANTUS [Concomitant]
     Active Substance: INSULIN GLARGINE
  6. DETENSIEL [Concomitant]
     Active Substance: BISOPROLOL FUMARATE
  7. INSULIN RAPID [Concomitant]
     Active Substance: INSULIN NOS

REACTIONS (1)
  - Adenocarcinoma pancreas [Unknown]

NARRATIVE: CASE EVENT DATE: 20160923
